FAERS Safety Report 7228124-4 (Version None)
Quarter: 2011Q1

REPORT INFORMATION
  Report Type: 
  Country: None (occurrence: None)
  Receive Date: 20110114
  Receipt Date: 20110105
  Transmission Date: 20110831
  Serious: Yes (Hospitalization)
  Sender: FDA-Public Use
  Company Number: FR-ASTRAZENECA-2011SE01054

PATIENT
  Sex: Male
  Weight: 12 kg

DRUGS (1)
  1. DIPRIVAN [Suspect]
     Indication: GENERAL ANAESTHESIA
     Dosage: 120 MG/HOUR FOR 3 HOURS
     Route: 041
     Dates: start: 20101015, end: 20101015

REACTIONS (1)
  - DELAYED RECOVERY FROM ANAESTHESIA [None]
